FAERS Safety Report 10135911 (Version 4)
Quarter: 2014Q2

REPORT INFORMATION
  Report Type: Report from Study
  Country: IT (occurrence: IT)
  Receive Date: 20140428
  Receipt Date: 20140617
  Transmission Date: 20141212
  Serious: Yes (Hospitalization)
  Sender: FDA-Public Use
  Company Number: PHHY2014IT049203

PATIENT
  Sex: Male
  Weight: 68 kg

DRUGS (6)
  1. RIBAVIRIN [Suspect]
     Indication: HEPATIC CIRRHOSIS
     Dosage: 1 DF, QD
     Route: 048
     Dates: start: 20130321, end: 20140220
  2. RIBAVIRIN [Suspect]
     Indication: CHRONIC HEPATITIS C
  3. PEGASYS [Suspect]
     Indication: HEPATIC CIRRHOSIS
     Dosage: 1 DF, QW
     Route: 058
     Dates: start: 20130321, end: 20140220
  4. PEGASYS [Suspect]
     Indication: CHRONIC HEPATITIS C
  5. BOCEPREVIR [Suspect]
     Indication: HEPATIC CIRRHOSIS
     Dosage: 2400 MG, QD
     Route: 048
     Dates: start: 20130418, end: 20140220
  6. BOCEPREVIR [Suspect]
     Indication: CHRONIC HEPATITIS C

REACTIONS (1)
  - Peritonitis bacterial [Recovered/Resolved]
